FAERS Safety Report 18128436 (Version 1)
Quarter: 2020Q3

REPORT INFORMATION
  Report Type: Spontaneous
  Country: PL (occurrence: PL)
  Receive Date: 20200810
  Receipt Date: 20200810
  Transmission Date: 20201103
  Serious: Yes (Life-Threatening, Hospitalization)
  Sender: FDA-Public Use
  Company Number: PL-TEVA-2020-PL-1813713

PATIENT
  Sex: Female
  Weight: 85 kg

DRUGS (2)
  1. DOXEPIN [Suspect]
     Active Substance: DOXEPIN
     Indication: ANTIDEPRESSANT THERAPY
     Route: 048
     Dates: start: 20200721
  2. LISINORATIO [Suspect]
     Active Substance: LISINOPRIL
     Route: 048
     Dates: start: 20200721

REACTIONS (3)
  - Bradycardia [Recovering/Resolving]
  - Hypertension [Recovering/Resolving]
  - Altered state of consciousness [Recovering/Resolving]

NARRATIVE: CASE EVENT DATE: 20200721
